FAERS Safety Report 9402553 (Version 3)
Quarter: 2013Q3

REPORT INFORMATION
  Report Type: Report from Study
  Country: FR (occurrence: FR)
  Receive Date: 20130716
  Receipt Date: 20130820
  Transmission Date: 20140515
  Serious: Yes (Hospitalization)
  Sender: FDA-Public Use
  Company Number: FR-ROCHE-1242772

PATIENT
  Age: 49 Year
  Sex: Female
  Weight: 86.3 kg

DRUGS (13)
  1. VISMODEGIB [Suspect]
     Indication: BASAL CELL CARCINOMA
     Dosage: LAST DOSE PRIOR TO ADVERSE EVENT: 25/JUN/2013.
     Route: 048
     Dates: start: 20130114
  2. ALPRAZOLAM [Concomitant]
     Indication: ANXIETY
     Route: 065
     Dates: start: 200001
  3. ROSUVASTATIN [Concomitant]
     Indication: DYSLIPIDAEMIA
     Route: 065
     Dates: start: 201206
  4. ZOLPIDEM [Concomitant]
     Indication: INSOMNIA
     Route: 065
     Dates: start: 200801
  5. PARACETAMOL [Concomitant]
     Indication: PAIN
     Route: 065
     Dates: start: 20130111
  6. PARACETAMOL [Concomitant]
     Indication: MUSCLE SPASMS
     Route: 065
     Dates: start: 20130204, end: 20130311
  7. PARACETAMOL [Concomitant]
     Indication: BRONCHITIS
     Route: 065
     Dates: start: 20130223, end: 20130302
  8. ESCITALOPRAM [Concomitant]
     Indication: DEPRESSION
     Route: 065
     Dates: start: 20130111
  9. MAGNE B6 (FRANCE) [Concomitant]
     Indication: MUSCLE SPASMS
     Route: 065
     Dates: start: 20130311
  10. PRISTINAMYCINE [Concomitant]
     Indication: BRONCHITIS
     Route: 065
     Dates: start: 20130223, end: 20130302
  11. PREDNISONE [Concomitant]
     Indication: BRONCHITIS
     Route: 065
     Dates: start: 20130223, end: 20130227
  12. RHINOTROPHYL [Concomitant]
     Indication: BRONCHITIS
     Dosage: 4-6 PUL/DAY
     Route: 065
     Dates: start: 20130223, end: 20130301
  13. HEXAQUINE [Concomitant]
     Indication: MUSCLE SPASMS
     Route: 065
     Dates: start: 20130702

REACTIONS (1)
  - Retinal artery occlusion [Recovered/Resolved with Sequelae]
